FAERS Safety Report 7378628-9 (Version None)
Quarter: 2011Q1

REPORT INFORMATION
  Report Type: 
  Country: None (occurrence: None)
  Receive Date: 20110328
  Receipt Date: 20110318
  Transmission Date: 20110831
  Serious: Yes (Other)
  Sender: FDA-Public Use
  Company Number: US-ROCHE-767104

PATIENT
  Sex: Female

DRUGS (2)
  1. RIBAVIRIN [Suspect]
     Indication: HEPATITIS C
     Dosage: TEMPORARILY STOPPED
     Route: 065
  2. PEGINTERFERON ALFA-2A [Suspect]
     Indication: HEPATITIS C
     Dosage: TEMPORARILY STOPPED
     Route: 065

REACTIONS (13)
  - WEIGHT DECREASED [None]
  - GASTROOESOPHAGEAL REFLUX DISEASE [None]
  - RED BLOOD CELL COUNT DECREASED [None]
  - PANIC ATTACK [None]
  - LETHARGY [None]
  - PYREXIA [None]
  - DYSPHAGIA [None]
  - WHITE BLOOD CELL COUNT DECREASED [None]
  - GINGIVAL INFECTION [None]
  - ORAL INFECTION [None]
  - FATIGUE [None]
  - ANXIETY [None]
  - CIRCULATORY COLLAPSE [None]
